FAERS Safety Report 8602409-9 (Version None)
Quarter: 2012Q3

REPORT INFORMATION
  Report Type: 
  Country: None (occurrence: None)
  Receive Date: 20120817
  Receipt Date: 20120808
  Transmission Date: 20120928
  Serious: Yes (Hospitalization)
  Sender: FDA-Public Use
  Company Number: US-PFIZER INC-2012146596

PATIENT
  Age: 80 Year
  Sex: Male
  Weight: 66 kg

DRUGS (13)
  1. OMEPRAZOLE [Concomitant]
     Dosage: 10 MG, UNK
  2. INOTUZUMAB OZOGAMICIN [Suspect]
     Indication: NON-HODGKIN'S LYMPHOMA
     Dosage: 1.49 MG, (4 MG /VIAL KIT)
     Route: 042
     Dates: start: 20120307, end: 20120531
  3. DEXAMETHASONE ACETATE [Suspect]
     Indication: NON-HODGKIN'S LYMPHOMA
     Dosage: 40 MG, UNK
     Route: 048
     Dates: start: 20120307, end: 20120530
  4. RITUXIMAB [Suspect]
     Indication: NON-HODGKIN'S LYMPHOMA
     Dosage: 697.5 MG, UNK
     Route: 042
     Dates: start: 20120307, end: 20120530
  5. CISPLATIN [Suspect]
     Indication: NON-HODGKIN'S LYMPHOMA
     Dosage: 93 MG, UNK
     Route: 042
     Dates: start: 20120307, end: 20120530
  6. GEMCITABINE HYDROCHLORIDE [Suspect]
     Indication: NON-HODGKIN'S LYMPHOMA
     Dosage: 930 MG, UNK
     Route: 042
     Dates: start: 20120307, end: 20120530
  7. EZETIMIBE [Concomitant]
     Dosage: 10 MG, UNK
  8. HYDROCHLOROTHIAZIDE [Concomitant]
     Dosage: 25 MG, UNK
  9. GABAPENTIN [Concomitant]
     Dosage: 300 MG, UNK
  10. ALLOPURINOL [Concomitant]
     Dosage: 100 MG, UNK
  11. ACETYLSALICYLIC ACID [Concomitant]
     Dosage: 81 MG, UNK
  12. VITAMIN B COMPLEX CAP [Concomitant]
     Dosage: UNK
  13. RAMIPRIL [Concomitant]
     Dosage: 10 MG, UNK

REACTIONS (3)
  - OEDEMA PERIPHERAL [None]
  - BODY TEMPERATURE INCREASED [None]
  - THROMBOSIS [None]
